FAERS Safety Report 9701202 (Version 2)
Quarter: 2013Q4

REPORT INFORMATION
  Report Type: Spontaneous
  Country: JP (occurrence: JP)
  Receive Date: 20131121
  Receipt Date: 20131121
  Transmission Date: 20140711
  Serious: Yes (Hospitalization, Other)
  Sender: FDA-Public Use
  Company Number: JP-PFIZER INC-2013325905

PATIENT
  Age: 19 Year
  Sex: Female
  Weight: 42.5 kg

DRUGS (11)
  1. METHOTREXATE SODIUM [Suspect]
     Indication: ACUTE LYMPHOCYTIC LEUKAEMIA
     Dosage: 4000 MG, UNK
     Route: 041
     Dates: start: 20131008, end: 20131015
  2. METHOTREXATE SODIUM [Suspect]
     Dosage: 4000 MG, DAILY
     Route: 041
     Dates: start: 20131016
  3. METHOTREXATE SODIUM [Suspect]
     Indication: ACUTE LYMPHOCYTIC LEUKAEMIA
     Dosage: 12 MG, UNK
     Route: 037
     Dates: start: 20130718, end: 20131015
  4. SOLU-CORTEF [Suspect]
     Indication: PROPHYLAXIS
     Dosage: 25 MG, UNK
     Route: 037
     Dates: start: 20130718, end: 20131015
  5. LEUCOVORIN [Suspect]
     Indication: PROPHYLAXIS
     Dosage: 21 MG, UNK
     Route: 042
     Dates: start: 20131010, end: 20131018
  6. CYLOCIDE [Suspect]
     Indication: ACUTE LYMPHOCYTIC LEUKAEMIA
     Dosage: 30 MG, UNK
     Route: 037
     Dates: start: 20130718, end: 20131015
  7. REBAMIPIDE [Concomitant]
  8. MEYLON [Concomitant]
  9. CALONAL [Concomitant]
  10. DIAMOX [Concomitant]
     Route: 048
  11. BENAMBAX [Concomitant]
     Route: 055

REACTIONS (3)
  - Encephalopathy [Recovering/Resolving]
  - Pain in extremity [Not Recovered/Not Resolved]
  - Restlessness [Unknown]
